FAERS Safety Report 10512807 (Version 1)
Quarter: 2014Q4

REPORT INFORMATION
  Report Type: Spontaneous
  Country: US (occurrence: US)
  Receive Date: 20141013
  Receipt Date: 20141013
  Transmission Date: 20150528
  Serious: Yes (Hospitalization, Other)
  Sender: FDA-Public Use
  Company Number: US-BEH-2014045442

PATIENT
  Age: 50 Year
  Sex: Male

DRUGS (2)
  1. HIZENTRA [Suspect]
     Active Substance: HUMAN IMMUNOGLOBULIN G
     Dosage: 10 GM; OCT-2013 TO DEC-2013
  2. HIZENTRA [Suspect]
     Active Substance: HUMAN IMMUNOGLOBULIN G
     Dosage: 4 GM; 14-SEP-2014-29-SEP2014

REACTIONS (8)
  - Malaise [Recovered/Resolved]
  - Malaise [Recovering/Resolving]
  - Hypersensitivity [Recovered/Resolved]
  - Rash generalised [Recovering/Resolving]
  - Adverse reaction [Recovered/Resolved]
  - Rash generalised [Recovered/Resolved]
  - Hypersensitivity [Recovering/Resolving]
  - Adverse reaction [Recovering/Resolving]

NARRATIVE: CASE EVENT DATE: 201310
